FAERS Safety Report 7013615-1 (Version None)
Quarter: 2010Q3

REPORT INFORMATION
  Report Type: 
  Country: None (occurrence: None)
  Receive Date: 20100924
  Receipt Date: 20100915
  Transmission Date: 20110219
  Serious: Yes (Hospitalization)
  Sender: FDA-Public Use
  Company Number: CN-ABBOTT-10P-035-0671224-00

PATIENT

DRUGS (1)
  1. DEPAKENE [Suspect]
     Indication: EPILEPSY
     Route: 048
     Dates: start: 20100601, end: 20100801

REACTIONS (3)
  - ABDOMINAL PAIN [None]
  - PRODUCT QUALITY ISSUE [None]
  - SYNCOPE [None]
